FAERS Safety Report 13154447 (Version 1)
Quarter: 2017Q1

REPORT INFORMATION
  Report Type: Spontaneous
  Country: FR (occurrence: FR)
  Receive Date: 20170126
  Receipt Date: 20170126
  Transmission Date: 20170428
  Serious: Yes (Hospitalization)
  Sender: FDA-Public Use
  Company Number: FR-PFIZER INC-2017030513

PATIENT
  Age: 67 Year
  Sex: Female

DRUGS (12)
  1. EVEROLIMUS [Concomitant]
     Active Substance: EVEROLIMUS
  2. KARDEGIC [Concomitant]
     Active Substance: ASPIRIN LYSINE
  3. LIPANTHYL [Concomitant]
     Active Substance: FENOFIBRATE
  4. ZYVOXID [Suspect]
     Active Substance: LINEZOLID
     Indication: STAPHYLOCOCCAL SKIN INFECTION
     Dosage: 600 MG, 2X/DAY
     Route: 048
     Dates: start: 20161125, end: 20161223
  5. AZATHIOPRINE. [Concomitant]
     Active Substance: AZATHIOPRINE
  6. PAROXETINE. [Concomitant]
     Active Substance: PAROXETINE
  7. FUROSEMIDE. [Concomitant]
     Active Substance: FUROSEMIDE
  8. ALPRAZOLAM. [Concomitant]
     Active Substance: ALPRAZOLAM
  9. ACEBUTOLOL [Concomitant]
     Active Substance: ACEBUTOLOL
  10. INNOHEP [Concomitant]
     Active Substance: TINZAPARIN SODIUM
     Dosage: UNK
     Dates: start: 20161130
  11. RAMIPRIL. [Concomitant]
     Active Substance: RAMIPRIL
  12. PREDNISOLONE. [Concomitant]
     Active Substance: PREDNISOLONE

REACTIONS (3)
  - Anaemia [Recovered/Resolved]
  - Vertigo [Recovered/Resolved]
  - Vomiting [Recovered/Resolved]

NARRATIVE: CASE EVENT DATE: 20161221
